FAERS Safety Report 14110394 (Version 1)
Quarter: 2017Q4

REPORT INFORMATION
  Report Type: Spontaneous
  Country: US (occurrence: US)
  Receive Date: 20171019
  Receipt Date: 20171019
  Transmission Date: 20180321
  Serious: Yes (Death, Hospitalization, Other)
  Sender: FDA-Public Use
  Company Number: None

PATIENT
  Age: 13 Year
  Sex: Male
  Weight: 56 kg

DRUGS (1)
  1. KETOROLAC [Suspect]
     Active Substance: KETOROLAC\KETOROLAC TROMETHAMINE
     Indication: MIGRAINE
     Dosage: 1 UNK?          OTHER FREQUENCY:ONCE;?
     Route: 030
     Dates: start: 20170526, end: 20170526

REACTIONS (4)
  - Status epilepticus [None]
  - Streptococcus test positive [None]
  - Seizure [None]
  - Post procedural complication [None]

NARRATIVE: CASE EVENT DATE: 20170526
